FAERS Safety Report 20163127 (Version 1)
Quarter: 2021Q4

REPORT INFORMATION
  Report Type: Report from Study
  Country: US (occurrence: US)
  Receive Date: 20211209
  Receipt Date: 20211209
  Transmission Date: 20220303
  Serious: Yes (Hospitalization)
  Sender: FDA-Public Use
  Company Number: US-BAUSCH-BL-2020-024076

PATIENT
  Age: 54 Year
  Sex: Male

DRUGS (1)
  1. SILIQ [Suspect]
     Active Substance: BRODALUMAB
     Indication: Product used for unknown indication
     Dosage: STARTED MEDICATION ON 2/12 (UNKNOWN); 210MG/1.5ML PFS (2/PK)
     Route: 058

REACTIONS (6)
  - Hospitalisation [Recovered/Resolved]
  - Dehydration [Unknown]
  - Dermatitis [Unknown]
  - Pain in extremity [Unknown]
  - Erythema [Unknown]
  - Pruritus [Unknown]

NARRATIVE: CASE EVENT DATE: 20210101
